FAERS Safety Report 19358181 (Version 3)
Quarter: 2021Q3

REPORT INFORMATION
  Report Type: Spontaneous
  Country: NL (occurrence: NL)
  Receive Date: 20210602
  Receipt Date: 20210709
  Transmission Date: 20211014
  Serious: Yes (Other)
  Sender: FDA-Public Use
  Company Number: NL-ROCHE-2836893

PATIENT
  Age: 57 Year
  Sex: Female

DRUGS (16)
  1. TUKYSA [Suspect]
     Active Substance: TUCATINIB
     Indication: HER2 POSITIVE BREAST CANCER
     Route: 065
     Dates: start: 20210511, end: 20210517
  2. TUKYSA [Suspect]
     Active Substance: TUCATINIB
     Route: 065
     Dates: start: 20210610
  3. TUKYSA [Suspect]
     Active Substance: TUCATINIB
     Route: 065
     Dates: start: 20210604
  4. TUKYSA [Suspect]
     Active Substance: TUCATINIB
     Route: 065
     Dates: start: 20210527
  5. TUKYSA [Suspect]
     Active Substance: TUCATINIB
     Route: 065
     Dates: end: 20210507
  6. RIVAROXABAN [Concomitant]
     Active Substance: RIVAROXABAN
     Dosage: 20 MG, QD
     Route: 048
  7. TUKYSA [Suspect]
     Active Substance: TUCATINIB
     Route: 065
  8. TUKYSA [Suspect]
     Active Substance: TUCATINIB
     Route: 065
     Dates: start: 20210304, end: 20210507
  9. FENTANYL. [Concomitant]
     Active Substance: FENTANYL
     Dosage: 200 UG AS NEEDED
     Route: 060
  10. CAPECITABINE. [Suspect]
     Active Substance: CAPECITABINE
     Indication: HER2 POSITIVE BREAST CANCER
     Route: 048
     Dates: start: 20210511
  11. MACROGOL [Concomitant]
     Active Substance: POLYETHYLENE GLYCOLS
     Dosage: UNK, QD
     Route: 048
  12. ANASTROZOL [Concomitant]
     Active Substance: ANASTROZOLE
     Dosage: 1 MG, QD
     Route: 048
  13. ZOPICLON [Concomitant]
     Active Substance: ZOPICLONE
     Dosage: 7.5 MG, QD IF NEEDED
  14. OMEPRAZOLE. [Concomitant]
     Active Substance: OMEPRAZOLE
     Dosage: 20 MG, QD
  15. PARACETAMOL [Concomitant]
     Active Substance: ACETAMINOPHEN
     Dosage: 500 MG
     Route: 048
  16. FENTANYL. [Concomitant]
     Active Substance: FENTANYL
     Dosage: 50 UG/UUR ONCE Q3DAYS
     Route: 062

REACTIONS (9)
  - Haptoglobin decreased [Unknown]
  - Blood bilirubin increased [Recovered/Resolved]
  - Reticulocyte count increased [Unknown]
  - Haemolytic anaemia [Unknown]
  - Haemoglobin abnormal [Unknown]
  - Folate deficiency [Unknown]
  - Hepatic failure [Unknown]
  - Hyperbilirubinaemia [Recovered/Resolved]
  - Medication error [Unknown]

NARRATIVE: CASE EVENT DATE: 20210507
